FAERS Safety Report 16419267 (Version 1)
Quarter: 2019Q2

REPORT INFORMATION
  Report Type: Spontaneous
  Country: PK (occurrence: PK)
  Receive Date: 20190612
  Receipt Date: 20190612
  Transmission Date: 20190711
  Serious: Yes (Other)
  Sender: FDA-Public Use
  Company Number: PK-SA-2019SA138528

PATIENT
  Age: 31 Year
  Sex: Female
  Weight: 72 kg

DRUGS (1)
  1. CLEXANE [Suspect]
     Active Substance: ENOXAPARIN SODIUM
     Indication: THROMBOSIS
     Dosage: 4000 IU, UNK
     Route: 058
     Dates: start: 20190409

REACTIONS (3)
  - Gestational diabetes [Unknown]
  - Blood glucose fluctuation [Unknown]
  - Exposure during pregnancy [Unknown]
